FAERS Safety Report 7009960-6 (Version None)
Quarter: 2010Q3

REPORT INFORMATION
  Report Type: 
  Country: None (occurrence: None)
  Receive Date: 20100923
  Receipt Date: 20100916
  Transmission Date: 20110219
  Serious: Yes (Other)
  Sender: FDA-Public Use
  Company Number: US-BRISTOL-MYERS SQUIBB COMPANY-15284508

PATIENT
  Age: 43 Year
  Sex: Female

DRUGS (2)
  1. TRIAMCINOLONE ACETONIDE [Suspect]
     Dosage: END OF DECEMBER 2005, SACROILIAC INJECTION
     Dates: start: 20051206
  2. NEFAZODONE HCL [Interacting]
     Route: 048

REACTIONS (3)
  - CUSHING'S SYNDROME [None]
  - DRUG INTERACTION [None]
  - SECONDARY ADRENOCORTICAL INSUFFICIENCY [None]
